FAERS Safety Report 15628694 (Version 1)
Quarter: 2018Q4

REPORT INFORMATION
  Report Type: Spontaneous
  Country: HR (occurrence: HR)
  Receive Date: 20181116
  Receipt Date: 20181116
  Transmission Date: 20190205
  Serious: Yes (Other)
  Sender: FDA-Public Use
  Company Number: HR-TEVA-2018-HR-975391

PATIENT
  Age: 80 Year
  Sex: Female
  Weight: 75 kg

DRUGS (4)
  1. TIMALEN 0,5 [Concomitant]
     Indication: GLAUCOMA
     Dosage: 2 GTT DAILY;
     Route: 047
  2. INDAPAMID SR [Suspect]
     Active Substance: INDAPAMIDE
     Indication: HYPERTENSION
     Dosage: 1.5 MILLIGRAM DAILY;
     Route: 048
     Dates: start: 20180919
  3. HEFEROL [Concomitant]
     Active Substance: FERROUS FUMARATE
     Indication: IRON DEFICIENCY ANAEMIA
     Dosage: 350 MILLIGRAM DAILY;
     Route: 048
  4. FOLACIN [Concomitant]
     Indication: IRON DEFICIENCY ANAEMIA
     Dosage: 5 MILLIGRAM DAILY;
     Route: 048

REACTIONS (3)
  - Headache [Not Recovered/Not Resolved]
  - Dizziness [Not Recovered/Not Resolved]
  - Arrhythmia [Not Recovered/Not Resolved]

NARRATIVE: CASE EVENT DATE: 20180925
